FAERS Safety Report 4538077-5 (Version None)
Quarter: 2004Q4

REPORT INFORMATION
  Report Type: 
  Country: None (occurrence: None)
  Receive Date: 20041221
  Receipt Date: 20041126
  Transmission Date: 20050328
  Serious: Yes (Death)
  Sender: FDA-Public Use
  Company Number: 2004112651

PATIENT
  Age: 29 Year
  Sex: Female
  Weight: 58 kg

DRUGS (1)
  1. DOSTINEX [Suspect]
     Indication: INFERTILITY FEMALE
     Dosage: ORAL
     Route: 048

REACTIONS (2)
  - CIRCULATORY COLLAPSE [None]
  - PULMONARY OEDEMA [None]
